FAERS Safety Report 5494856-1 (Version None)
Quarter: 2007Q4

REPORT INFORMATION
  Report Type: 
  Country: None (occurrence: None)
  Receive Date: 20071022
  Receipt Date: 20071011
  Transmission Date: 20080405
  Serious: Yes (Hospitalization, Disabling)
  Sender: FDA-Public Use
  Company Number: OSCN-NO-0709S-0361

PATIENT
  Age: 14 Year
  Sex: Male

DRUGS (15)
  1. OMNISCAN [Suspect]
     Indication: GLAUCOMA
     Dosage: 10 ML, SINGLE DOSE, I.V.; 10 ML. I.V.; I.V.
     Route: 042
     Dates: start: 20060904, end: 20060904
  2. OMNISCAN [Suspect]
     Indication: RETINAL NEOPLASM
     Dosage: 10 ML, SINGLE DOSE, I.V.; 10 ML. I.V.; I.V.
     Route: 042
     Dates: start: 20060904, end: 20060904
  3. OMNISCAN [Suspect]
     Indication: GLAUCOMA
     Dosage: 10 ML, SINGLE DOSE, I.V.; 10 ML. I.V.; I.V.
     Route: 042
     Dates: start: 20061228, end: 20061228
  4. OMNISCAN [Suspect]
     Indication: RETINAL NEOPLASM
     Dosage: 10 ML, SINGLE DOSE, I.V.; 10 ML. I.V.; I.V.
     Route: 042
     Dates: start: 20061228, end: 20061228
  5. OMNISCAN [Suspect]
     Indication: GLAUCOMA
     Dosage: 10 ML, SINGLE DOSE, I.V.; 10 ML. I.V.; I.V.
     Route: 042
     Dates: start: 20070112, end: 20070112
  6. OMNISCAN [Suspect]
     Indication: RETINAL NEOPLASM
     Dosage: 10 ML, SINGLE DOSE, I.V.; 10 ML. I.V.; I.V.
     Route: 042
     Dates: start: 20070112, end: 20070112
  7. EPOETIN [Concomitant]
  8. FAMOTIDINE [Concomitant]
  9. CEFMETAZOLE SODIUM (CEFMETAZON) [Concomitant]
  10. PENTAZOCINE (SOSEGON) [Concomitant]
  11. ALFACALCIDOL (ONEALFA) [Concomitant]
  12. FERROUS CITRATE (FEROMIA) [Concomitant]
  13. ALLOPURINOL [Concomitant]
  14. AMLODIPINE BESYLATE [Concomitant]
  15. CANDESARTAN CILEXETIL (BLOPRESS) [Concomitant]

REACTIONS (8)
  - AUTOIMMUNE DISORDER [None]
  - AZOTAEMIA [None]
  - EYE EXCISION [None]
  - GRIP STRENGTH DECREASED [None]
  - MUSCLE CONTRACTURE [None]
  - NEPHROGENIC ANAEMIA [None]
  - NEPHROGENIC SYSTEMIC FIBROSIS [None]
  - RENAL OSTEODYSTROPHY [None]
